FAERS Safety Report 7956351-7 (Version None)
Quarter: 2011Q4

REPORT INFORMATION
  Report Type: 
  Country: None (occurrence: None)
  Receive Date: 20111205
  Receipt Date: 20111130
  Transmission Date: 20120403
  Serious: Yes (Hospitalization)
  Sender: FDA-Public Use
  Company Number: FR-PFIZER INC-2011292831

PATIENT
  Age: 52 Year
  Sex: Female

DRUGS (5)
  1. PLAVIX [Concomitant]
  2. ASPIRIN [Concomitant]
  3. OMACOR [Concomitant]
  4. BISOPROLOL FUMARATE [Concomitant]
  5. ATORVASTATIN CALCIUM [Suspect]
     Dosage: UNK
     Route: 048
     Dates: start: 20110301, end: 20110606

REACTIONS (1)
  - CYTOLYTIC HEPATITIS [None]
